FAERS Safety Report 5352623-3 (Version None)
Quarter: 2007Q2

REPORT INFORMATION
  Report Type: 
  Country: None (occurrence: None)
  Receive Date: 20070611
  Receipt Date: 20070530
  Transmission Date: 20071010
  Serious: Yes (Other)
  Sender: FDA-Public Use
  Company Number: GB-ELI_LILLY_AND_COMPANY-GB200705000043

PATIENT
  Age: 31 Year
  Sex: Male
  Weight: 75 kg

DRUGS (9)
  1. DROTRECOGIN ALFA (ACTIVATED) [Suspect]
     Indication: SEPSIS
     Dosage: 0.024 MG/KG, EVERY HOUR
     Route: 042
     Dates: start: 20070429, end: 20070502
  2. NORADRENALINE [Concomitant]
     Indication: HYPOTENSION
     Dates: start: 20070429
  3. RANITIDINE [Concomitant]
     Indication: SEPSIS
     Dates: start: 20070429
  4. HYDROCORTISONE [Concomitant]
     Indication: SEPSIS
     Dates: start: 20070429
  5. TAZOCIN [Concomitant]
     Indication: PNEUMONIA
     Dates: start: 20070429
  6. METRONIDAZOLE [Concomitant]
     Indication: PNEUMONIA
     Dates: start: 20070429
  7. PROPOFOL [Concomitant]
     Indication: SEDATION
     Dates: start: 20070429
  8. MORPHINE [Concomitant]
     Indication: ANALGESIC EFFECT
     Dates: start: 20070429
  9. MIDAZOLAM HCL [Concomitant]
     Indication: SEDATION
     Dates: start: 20070429

REACTIONS (4)
  - ACTIVATED PARTIAL THROMBOPLASTIN TIME PROLONGED [None]
  - CHEST X-RAY ABNORMAL [None]
  - LOWER RESPIRATORY TRACT INFECTION [None]
  - RALES [None]
